FAERS Safety Report 7926749-1 (Version None)
Quarter: 2011Q4

REPORT INFORMATION
  Report Type: 
  Country: None (occurrence: None)
  Receive Date: 20111116
  Receipt Date: 20111106
  Transmission Date: 20120403
  Serious: Yes (Death, Other)
  Sender: FDA-Public Use
  Company Number: FK201102597

PATIENT
  Age: 68 Year
  Sex: Male

DRUGS (2)
  1. CHOLCHICINE (COLCHICINE) (COLCHICINE) [Suspect]
     Indication: PRODUCT USED FOR UNKNOWN INDICATION
  2. AMIODARONE HCL [Suspect]
     Indication: PRODUCT USED FOR UNKNOWN INDICATION
     Dosage: SEE IMAGE
     Route: 048

REACTIONS (5)
  - RENAL FAILURE ACUTE [None]
  - CARDIAC ARREST [None]
  - THROMBOCYTOPENIA [None]
  - TOXICITY TO VARIOUS AGENTS [None]
  - ARTHRALGIA [None]
